FAERS Safety Report 7249318 (Version 4)
Quarter: 2012Q4

REPORT INFORMATION
  Report Type: 
  Country: US (occurrence: US)
  Receive Date: 20100119
  Receipt Date: 20121002
  Transmission Date: 20130627
  Serious: Yes (Hospitalization, Other)
  Sender: FDA-Public Use
  Company Number: US-ELI_LILLY_AND_COMPANY-US201001002934

PATIENT
  Age: 50 Year
  Sex: Male
  Weight: 102.4 kg

DRUGS (10)
  1. BYETTA [Suspect]
     Dosage: 5 ug, bid
     Route: 058
     Dates: start: 20070110
  2. BYETTA [Suspect]
     Dosage: 10 mg, bid
     Route: 058
     Dates: end: 200807
  3. LANTUS [Concomitant]
     Dosage: UNK, unknown
  4. ORAL ANTIDIABETICS [Concomitant]
     Dosage: UNK, unknown
  5. CHOLESTEROL- AND TRIGLYCERIDE REDUCERS [Concomitant]
     Dosage: UNK, unknown
  6. TYLENOL                                 /SCH/ [Concomitant]
     Dosage: UNK, unknown
  7. TRICOR [Concomitant]
     Dosage: UNK, qd
  8. GLUCOPHAGE [Concomitant]
     Dosage: 1000 mg, bid
  9. PRANDIN [Concomitant]
     Dosage: 2 mg, tid
  10. LESCOL [Concomitant]

REACTIONS (3)
  - Pancreatitis acute [Recovered/Resolved]
  - Hyperlipidaemia [Unknown]
  - Off label use [Recovered/Resolved]
